FAERS Safety Report 11970531 (Version 1)
Quarter: 2016Q1

REPORT INFORMATION
  Report Type: Spontaneous
  Country: US (occurrence: None)
  Receive Date: 20160127
  Receipt Date: 20160127
  Transmission Date: 20160526
  Serious: No
  Sender: FDA-Public Use
  Company Number: None

PATIENT
  Age: 55 Year
  Sex: Male
  Weight: 113.85 kg

DRUGS (1)
  1. ACCUPRIL [Suspect]
     Active Substance: QUINAPRIL HYDROCHLORIDE
     Indication: HYPERTENSION
     Dosage: 1 PILL
     Route: 048

REACTIONS (3)
  - Lip oedema [None]
  - Hypersensitivity [None]
  - Periorbital oedema [None]

NARRATIVE: CASE EVENT DATE: 20130520
